FAERS Safety Report 14413620 (Version 1)
Quarter: 2018Q1

REPORT INFORMATION
  Report Type: Report from Study
  Country: PT (occurrence: PT)
  Receive Date: 20180119
  Receipt Date: 20180119
  Transmission Date: 20180509
  Serious: Yes (Other)
  Sender: FDA-Public Use
  Company Number: PT-TEVA-2018-PT-846462

PATIENT

DRUGS (3)
  1. OMBITASVIR/PARITAPREVIR/RITONAVIR [Concomitant]
     Active Substance: OMBITASVIR\PARITAPREVIR\RITONAVIR
     Indication: HEPATITIS C
     Route: 065
  2. DASABUVIR [Concomitant]
     Active Substance: DASABUVIR
     Indication: HEPATITIS C
     Route: 065
  3. CICLOSPORIN [Suspect]
     Active Substance: CYCLOSPORINE
     Indication: IMMUNOSUPPRESSANT DRUG THERAPY
     Route: 065

REACTIONS (2)
  - Acute kidney injury [Unknown]
  - Toxicity to various agents [Unknown]
